FAERS Safety Report 13122162 (Version 2)
Quarter: 2017Q1

REPORT INFORMATION
  Report Type: Spontaneous
  Country: FR (occurrence: FR)
  Receive Date: 20170117
  Receipt Date: 20170227
  Transmission Date: 20170428
  Serious: Yes (Other)
  Sender: FDA-Public Use
  Company Number: FR-PFIZER INC-2017010664

PATIENT
  Age: 29 Year
  Sex: Female
  Weight: 55 kg

DRUGS (7)
  1. ZYVOXID [Suspect]
     Active Substance: LINEZOLID
     Indication: TUBERCULOSIS
     Dosage: 600 MG, DAILY
     Route: 048
     Dates: start: 20160608, end: 20160813
  2. CYCLOSERINE. [Concomitant]
     Active Substance: CYCLOSERINE
     Indication: TUBERCULOSIS
     Dosage: UNK
     Dates: start: 201606, end: 20160909
  3. PIRILENE [Concomitant]
     Active Substance: PYRAZINAMIDE
     Indication: TUBERCULOSIS
     Dosage: UNK
     Dates: start: 201606, end: 20160909
  4. MOXIFLOXACIN. [Concomitant]
     Active Substance: MOXIFLOXACIN
     Indication: TUBERCULOSIS
     Dosage: UNK
     Dates: start: 201606, end: 20160909
  5. AMIKACIN [Concomitant]
     Active Substance: AMIKACIN
     Indication: TUBERCULOSIS
     Dosage: UNK
     Dates: start: 201606, end: 20160909
  6. LAMPRENE /00224701/ [Concomitant]
     Indication: TUBERCULOSIS
     Dosage: UNK
     Dates: start: 201606, end: 20160909
  7. NICOBION [Concomitant]
     Active Substance: NIACINAMIDE
     Indication: TUBERCULOSIS
     Dosage: UNK
     Dates: start: 201606, end: 20160909

REACTIONS (2)
  - Retinal vein occlusion [Recovered/Resolved]
  - Visual acuity reduced [Recovered/Resolved]

NARRATIVE: CASE EVENT DATE: 20160808
